FAERS Safety Report 15949489 (Version 1)
Quarter: 2019Q1

REPORT INFORMATION
  Report Type: Spontaneous
  Country: GB (occurrence: GB)
  Receive Date: 20190212
  Receipt Date: 20190212
  Transmission Date: 20190417
  Serious: Yes (Other)
  Sender: FDA-Public Use
  Company Number: PHHY2019GB029792

PATIENT
  Age: 56 Year
  Sex: Female

DRUGS (1)
  1. TEGRETOL [Suspect]
     Active Substance: CARBAMAZEPINE
     Indication: SCHIZOPHRENIA
     Dosage: 1 DF, BID (ONE TABLET IN THE MORNING AND ONE IN THE EVENING)
     Route: 065

REACTIONS (12)
  - Lipomatosis [Unknown]
  - Scab [Unknown]
  - Skin reaction [Unknown]
  - Blood cholesterol increased [Unknown]
  - Alopecia [Unknown]
  - Abdominal distension [Unknown]
  - Skin mass [Unknown]
  - Skin discolouration [Unknown]
  - Product use in unapproved indication [Unknown]
  - Diabetes mellitus [Unknown]
  - Blister [Unknown]
  - Oedema peripheral [Unknown]
